FAERS Safety Report 20137828 (Version 1)
Quarter: 2021Q4

REPORT INFORMATION
  Report Type: Spontaneous
  Country: GB (occurrence: None)
  Receive Date: 20211202
  Receipt Date: 20211202
  Transmission Date: 20220303
  Serious: Yes (Other)
  Sender: FDA-Public Use
  Company Number: None

PATIENT
  Sex: Female

DRUGS (4)
  1. VENLAFAXINE [Suspect]
     Active Substance: VENLAFAXINE HYDROCHLORIDE
     Indication: Ill-defined disorder
     Dosage: 235
     Route: 048
     Dates: start: 20130110
  2. AMITRIPTYLINE [Concomitant]
     Active Substance: AMITRIPTYLINE
     Indication: Headache
  3. TROSPIUM [Concomitant]
     Active Substance: TROSPIUM
     Indication: Bladder disorder
  4. DIAZEPAM [Concomitant]
     Active Substance: DIAZEPAM
     Indication: Ill-defined disorder

REACTIONS (6)
  - Headache [Not Recovered/Not Resolved]
  - Mood swings [Unknown]
  - Alopecia [Unknown]
  - Weight increased [Unknown]
  - Suicidal ideation [Unknown]
  - Nodule [Unknown]
